FAERS Safety Report 14734275 (Version 1)
Quarter: 2018Q2

REPORT INFORMATION
  Report Type: Spontaneous
  Country: US (occurrence: US)
  Receive Date: 20180409
  Receipt Date: 20180409
  Transmission Date: 20180711
  Serious: Yes (Other)
  Sender: FDA-Public Use
  Company Number: US-LINDE-US-LHC-2018074

PATIENT
  Age: 44 Year
  Sex: Female

DRUGS (1)
  1. CARBON DIOXIDE (GENERIC) [Suspect]
     Active Substance: CARBON DIOXIDE
     Indication: LAPAROSCOPY

REACTIONS (6)
  - Heart rate increased [Recovered/Resolved]
  - Oxygen saturation decreased [Recovered/Resolved]
  - Venous pressure increased [Recovered/Resolved]
  - End-tidal CO2 decreased [Recovered/Resolved]
  - Air embolism [Recovered/Resolved]
  - Blood pressure decreased [Recovered/Resolved]
